FAERS Safety Report 12674351 (Version 1)
Quarter: 2016Q3

REPORT INFORMATION
  Report Type: Spontaneous
  Country: US (occurrence: US)
  Receive Date: 20160822
  Receipt Date: 20160822
  Transmission Date: 20161109
  Serious: No
  Sender: FDA-Public Use
  Company Number: US-BEH-2010023261

PATIENT
  Age: 56 Year
  Sex: Female
  Weight: 102.51 kg

DRUGS (20)
  1. NASONEX [Concomitant]
     Active Substance: MOMETASONE FUROATE
     Dosage: 1 SPRAY EACH NOSTRIL DAILY
     Route: 045
  2. NEXIUM [Concomitant]
     Active Substance: ESOMEPRAZOLE MAGNESIUM
     Dosage: 40 MG DAILY
  3. PREDNISONE. [Concomitant]
     Active Substance: PREDNISONE
     Dosage: 10 MG PRN
  4. ZEMAIRA [Suspect]
     Active Substance: .ALPHA.1-PROTEINASE INHIBITOR HUMAN
     Dosage: 60 MG/KG +/- 10% WEEKLY OVER 2-2 1/2 HOURS
     Route: 042
     Dates: start: 20100819
  5. AMBIEN [Concomitant]
     Active Substance: ZOLPIDEM TARTRATE
     Dosage: 10 MG HS
  6. VITAMIN B12 [Concomitant]
     Active Substance: CYANOCOBALAMIN
     Indication: PERNICIOUS ANAEMIA
     Dosage: 100 MCG MONTHLY
  7. VITAMIN D [Concomitant]
     Active Substance: CHOLECALCIFEROL
     Dosage: 3 DAILY
     Route: 048
  8. ZEMAIRA [Suspect]
     Active Substance: .ALPHA.1-PROTEINASE INHIBITOR HUMAN
     Indication: ALPHA-1 ANTI-TRYPSIN DEFICIENCY
     Dosage: 60 MG/KG (1052 MG VIALS) OVER 2 1/2 HRS ON THURSDAYS
     Route: 042
     Dates: start: 20040102
  9. ALLEGRA-D [Concomitant]
     Active Substance: FEXOFENADINE\PSEUDOEPHEDRINE
     Dosage: 24 HOURS TABLET PRN
     Route: 048
  10. PLAQUENIL [Concomitant]
     Active Substance: HYDROXYCHLOROQUINE SULFATE
     Dosage: 200 MG BID
  11. ZEMAIRA [Suspect]
     Active Substance: .ALPHA.1-PROTEINASE INHIBITOR HUMAN
     Dosage: 60 MG/KG +/- 10% OVER 3 HOURS
     Route: 042
     Dates: start: 20100826
  12. MILK THISTLE [Concomitant]
     Active Substance: MILK THISTLE
     Dosage: 175 MG DAILY
  13. MVI [Concomitant]
     Active Substance: VITAMINS
     Dosage: DAILY
  14. RESTASIS [Concomitant]
     Active Substance: CYCLOSPORINE
     Dosage: 1 OU BID
     Route: 047
  15. PULMICORT TURBUHALER [Concomitant]
     Active Substance: BUDESONIDE
     Dosage: 1 TID PRN
  16. ALBUTEROL. [Concomitant]
     Active Substance: ALBUTEROL
     Dosage: 1 DOSE TID PRN
  17. SYNTHROID [Concomitant]
     Active Substance: LEVOTHYROXINE SODIUM
     Dosage: 88 MCG DAILY
  18. LYRICA [Concomitant]
     Active Substance: PREGABALIN
     Dosage: 150 MG HS
  19. OMEGA 3 [Concomitant]
     Active Substance: OMEGA-3 FATTY ACIDS
     Dosage: 1 DAILY
  20. ADVAIR HFA [Concomitant]
     Active Substance: FLUTICASONE PROPIONATE\SALMETEROL XINAFOATE
     Dosage: 250/50 BID

REACTIONS (14)
  - Lymphadenopathy [Unknown]
  - Feeling abnormal [Unknown]
  - Chills [Unknown]
  - Malaise [Recovered/Resolved]
  - Pain [Recovered/Resolved]
  - Lymph node pain [Recovered/Resolved]
  - Malaise [Recovered/Resolved]
  - Pain [Recovered/Resolved]
  - Headache [Not Recovered/Not Resolved]
  - Dyspnoea [Unknown]
  - Headache [Unknown]
  - Lymph node pain [Unknown]
  - Lymph node pain [Recovered/Resolved]
  - Influenza like illness [Unknown]

NARRATIVE: CASE EVENT DATE: 201008
